FAERS Safety Report 10131741 (Version 2)
Quarter: 2014Q2

REPORT INFORMATION
  Report Type: Spontaneous
  Country: US (occurrence: US)
  Receive Date: 20140428
  Receipt Date: 20140509
  Transmission Date: 20141212
  Serious: Yes (Death, Other)
  Sender: FDA-Public Use
  Company Number: US-BAXTER-2014BAX019896

PATIENT
  Sex: Female

DRUGS (1)
  1. DIANEAL LOW CALCIUM [Suspect]
     Indication: PERITONEAL DIALYSIS
     Route: 033
     Dates: start: 20140408, end: 20140413

REACTIONS (7)
  - Death [Fatal]
  - Hypoglycaemia [Unknown]
  - Blood glucose abnormal [Unknown]
  - Dysarthria [Unknown]
  - Somnolence [Unknown]
  - Cold sweat [Unknown]
  - Discomfort [Unknown]
